FAERS Safety Report 10386718 (Version 1)
Quarter: 2014Q3

REPORT INFORMATION
  Report Type: Spontaneous
  Country: US (occurrence: None)
  Receive Date: 20140814
  Receipt Date: 20140814
  Transmission Date: 20150326
  Serious: Yes (Other)
  Sender: FDA-Public Use
  Company Number: None

PATIENT
  Age: 48 Year
  Sex: Male
  Weight: 91.63 kg

DRUGS (2)
  1. XOLAIR [Suspect]
     Active Substance: OMALIZUMAB
     Indication: BRONCHIAL HYPERREACTIVITY
     Dates: start: 20140224, end: 20140310
  2. XOLAIR [Suspect]
     Active Substance: OMALIZUMAB
     Indication: BRONCHIECTASIS
     Dates: start: 20140224, end: 20140310

REACTIONS (7)
  - Arthralgia [None]
  - Lymphadenopathy [None]
  - Vasculitis [None]
  - Myalgia [None]
  - Pyrexia [None]
  - Mental status changes [None]
  - Fatigue [None]

NARRATIVE: CASE EVENT DATE: 20140427
